FAERS Safety Report 23388075 (Version 1)
Quarter: 2024Q1

REPORT INFORMATION
  Report Type: Spontaneous
  Country: US (occurrence: None)
  Receive Date: 20240110
  Receipt Date: 20240110
  Transmission Date: 20240410
  Serious: Yes (Life-Threatening, Hospitalization, Disabling)
  Sender: FDA-Public Use
  Company Number: None

PATIENT
  Age: 54 Year
  Sex: Male
  Weight: 117 kg

DRUGS (8)
  1. OZEMPIC [Suspect]
     Active Substance: SEMAGLUTIDE
     Indication: Glycosylated haemoglobin increased
     Dosage: OTHER QUANTITY : 1 INJECTION(S);?OTHER FREQUENCY : WEEKLY INJECTION;?OTHER ROUTE : INJECTED;?
     Route: 050
  2. LISINOPRIL [Concomitant]
     Active Substance: LISINOPRIL
  3. LASIX [Concomitant]
     Active Substance: FUROSEMIDE
  4. DEVICE [Concomitant]
     Active Substance: DEVICE
  5. VITAMIN D [Concomitant]
     Active Substance: VITAMIN D NOS
  6. BComplex [Concomitant]
  7. MAGNESIUM [Concomitant]
     Active Substance: MAGNESIUM
  8. PROBIOTICS NOS [Concomitant]
     Active Substance: PROBIOTICS NOS

REACTIONS (10)
  - Pancreatitis necrotising [None]
  - Ileus [None]
  - Drug hypersensitivity [None]
  - Infection [None]
  - Pancreatic leak [None]
  - Multiple organ dysfunction syndrome [None]
  - Umbilical discharge [None]
  - COVID-19 [None]
  - Eye infection [None]
  - Blindness unilateral [None]

NARRATIVE: CASE EVENT DATE: 20220502
